FAERS Safety Report 5368093-5 (Version None)
Quarter: 2007Q2

REPORT INFORMATION
  Report Type: 
  Country: None (occurrence: None)
  Receive Date: 20070622
  Receipt Date: 20070618
  Transmission Date: 20071010
  Serious: Yes (Other)
  Sender: FDA-Public Use
  Company Number: JP-MERCK-0706USA01551

PATIENT
  Age: 30 Year
  Sex: Male

DRUGS (5)
  1. DECADRON [Suspect]
     Indication: LYMPHOMA
     Route: 048
  2. ETOPOSIDE [Concomitant]
     Indication: LYMPHOMA
     Route: 042
  3. AMPICILLIN SODIUM AND SULBACTAM SODIUM [Concomitant]
     Route: 042
  4. TIENAM [Concomitant]
     Indication: PROPHYLAXIS
     Route: 042
  5. MICAFUNGIN SODIUM [Concomitant]
     Route: 042

REACTIONS (4)
  - BRONCHOPLEURAL FISTULA [None]
  - LUNG INFECTION PSEUDOMONAL [None]
  - NEUTROPHIL COUNT DECREASED [None]
  - PSEUDOMONAS INFECTION [None]
